FAERS Safety Report 8027803-9 (Version None)
Quarter: 2011Q4

REPORT INFORMATION
  Report Type: 
  Country: None (occurrence: None)
  Receive Date: 20111130
  Receipt Date: 20110705
  Transmission Date: 20120403
  Serious: Yes (Hospitalization, Other)
  Sender: FDA-Public Use
  Company Number: US201005000605

PATIENT
  Sex: Female
  Weight: 94.3 kg

DRUGS (5)
  1. BYETTA [Suspect]
     Dates: start: 20050909, end: 20080411
  2. METFORMIN HCL [Concomitant]
  3. EXENATIDE, DISPOSABLE DEVICE (EXENATIDE PEN ) PEN,DISPOSABLE [Concomitant]
  4. GLIPIZIDE [Concomitant]
  5. ACTOS [Concomitant]

REACTIONS (2)
  - RENAL FAILURE [None]
  - PANCREATITIS [None]
